FAERS Safety Report 9939134 (Version 1)
Quarter: 2014Q1

REPORT INFORMATION
  Report Type: Report from Study
  Country: US (occurrence: US)
  Receive Date: 20140303
  Receipt Date: 20140303
  Transmission Date: 20141002
  Serious: No
  Sender: FDA-Public Use
  Company Number: US-ABBVIE-13P-163-1034059-00

PATIENT
  Age: 57 Year
  Sex: Male
  Weight: 87.62 kg

DRUGS (7)
  1. HUMIRA [Suspect]
     Indication: SJOGREN^S SYNDROME
     Route: 058
     Dates: start: 201211
  2. HUMIRA [Suspect]
     Indication: CONNECTIVE TISSUE DISORDER
  3. METHOTREXATE [Concomitant]
     Indication: SJOGREN^S SYNDROME
  4. FOLIC ACID [Concomitant]
     Indication: ILL-DEFINED DISORDER
  5. PLAQUENIL [Concomitant]
     Indication: SJOGREN^S SYNDROME
  6. NEXIUM [Concomitant]
     Indication: GASTROOESOPHAGEAL REFLUX DISEASE
  7. TRAMADOL [Concomitant]
     Indication: BACK PAIN

REACTIONS (1)
  - Off label use [Unknown]
